FAERS Safety Report 6212742-6 (Version None)
Quarter: 2009Q2

REPORT INFORMATION
  Report Type: 
  Country: None (occurrence: None)
  Receive Date: 20090603
  Receipt Date: 20090520
  Transmission Date: 20091009
  Serious: Yes (Other)
  Sender: FDA-Public Use
  Company Number: PHHY2009CA17422

PATIENT
  Sex: Female

DRUGS (2)
  1. SANDOSTATIN LAR [Suspect]
     Indication: ACROMEGALY
     Dosage: 30 MG, QW4
     Route: 030
     Dates: start: 20080923
  2. SANDOSTATIN LAR [Suspect]
     Dosage: 30 MG
     Route: 030

REACTIONS (7)
  - BLOOD GLUCOSE DECREASED [None]
  - CONSTIPATION [None]
  - MUSCLE SPASMS [None]
  - PITUITARY TUMOUR [None]
  - SKIN DISCOLOURATION [None]
  - SLEEP APNOEA SYNDROME [None]
  - URINARY INCONTINENCE [None]
